FAERS Safety Report 8206441-9 (Version None)
Quarter: 2012Q1

REPORT INFORMATION
  Report Type: 
  Country: None (occurrence: None)
  Receive Date: 20120313
  Receipt Date: 20120309
  Transmission Date: 20120608
  Serious: Yes (Hospitalization)
  Sender: FDA-Public Use
  Company Number: PHHY2012CN019137

PATIENT
  Age: 22 Year
  Sex: Female

DRUGS (5)
  1. TRILEPTAL [Suspect]
     Dosage: 300 MG, TID
  2. TRILEPTAL [Suspect]
     Indication: EPILEPSY
     Dosage: 600 MG, DAILY
     Dates: start: 20111001
  3. TRILEPTAL [Suspect]
     Dosage: 150 MG, UNK
  4. TRILEPTAL [Suspect]
     Dosage: 300 MG, TID
     Route: 048
  5. TRILEPTAL [Suspect]
     Dosage: 300 MG, UNK
     Dates: start: 20120302

REACTIONS (3)
  - EPILEPSY [None]
  - DRUG INEFFECTIVE [None]
  - COMA [None]
